FAERS Safety Report 23249025 (Version 2)
Quarter: 2024Q1

REPORT INFORMATION
  Report Type: Spontaneous
  Country: CA (occurrence: CA)
  Receive Date: 20231201
  Receipt Date: 20240318
  Transmission Date: 20240410
  Serious: Yes (Other)
  Sender: FDA-Public Use
  Company Number: CA-SANDOZ-SDZ2023CA061346

PATIENT
  Age: 25 Year
  Sex: Female

DRUGS (27)
  1. TACROLIMUS [Suspect]
     Active Substance: TACROLIMUS
     Dosage: 10 MG, QD
     Route: 048
  2. TACROLIMUS [Suspect]
     Active Substance: TACROLIMUS
     Dosage: 10 MG, QD
     Route: 048
  3. TACROLIMUS [Suspect]
     Active Substance: TACROLIMUS
     Dosage: 5.5 MG, QD
     Route: 048
  4. TACROLIMUS [Suspect]
     Active Substance: TACROLIMUS
     Dosage: 6 MG, QD
     Route: 048
  5. TACROLIMUS [Suspect]
     Active Substance: TACROLIMUS
     Dosage: 6.5 MG, QD
     Route: 048
  6. TACROLIMUS [Suspect]
     Active Substance: TACROLIMUS
     Indication: Renal transplant
     Dosage: 7 MG, QD
     Route: 048
  7. TACROLIMUS [Suspect]
     Active Substance: TACROLIMUS
     Dosage: 7 MG, QD
     Route: 048
  8. TACROLIMUS [Suspect]
     Active Substance: TACROLIMUS
     Dosage: 8 MG, QD
     Route: 048
  9. TACROLIMUS [Suspect]
     Active Substance: TACROLIMUS
     Dosage: 8 MG, QD
     Route: 048
  10. TACROLIMUS [Suspect]
     Active Substance: TACROLIMUS
     Dosage: 8.5 MG, QD
     Route: 048
  11. TACROLIMUS [Suspect]
     Active Substance: TACROLIMUS
     Dosage: 8.75 MG, QD
     Route: 048
  12. TACROLIMUS [Suspect]
     Active Substance: TACROLIMUS
     Dosage: 9 MG, QD
     Route: 048
  13. TACROLIMUS [Suspect]
     Active Substance: TACROLIMUS
     Dosage: 9 MG, QD
     Route: 048
  14. TACROLIMUS [Suspect]
     Active Substance: TACROLIMUS
     Dosage: 9.5 MG, QD
     Route: 048
  15. ATIVAN [Concomitant]
     Active Substance: LORAZEPAM
     Indication: Product used for unknown indication
     Route: 065
  16. ATIVAN [Concomitant]
     Active Substance: LORAZEPAM
     Indication: Product used for unknown indication
     Route: 065
  17. CALCIUM [Concomitant]
     Active Substance: CALCIUM
     Indication: Product used for unknown indication
     Route: 065
  18. CALCIUM [Concomitant]
     Active Substance: CALCIUM
     Indication: Product used for unknown indication
     Route: 065
  19. CHOLECALCIFEROL [Concomitant]
     Active Substance: CHOLECALCIFEROL
     Indication: Product used for unknown indication
     Route: 065
  20. CHOLECALCIFEROL [Concomitant]
     Active Substance: CHOLECALCIFEROL
     Indication: Product used for unknown indication
     Route: 065
  21. MYFORTIC [Concomitant]
     Active Substance: MYCOPHENOLATE SODIUM
     Indication: Product used for unknown indication
     Route: 065
  22. ALFACALCIDOL [Concomitant]
     Active Substance: ALFACALCIDOL
     Indication: Product used for unknown indication
     Route: 065
  23. ALFACALCIDOL [Concomitant]
     Active Substance: ALFACALCIDOL
     Indication: Product used for unknown indication
     Route: 065
  24. PREDNISONE [Concomitant]
     Active Substance: PREDNISONE
     Indication: Product used for unknown indication
     Route: 065
  25. PREDNISONE [Concomitant]
     Active Substance: PREDNISONE
     Indication: Product used for unknown indication
     Route: 065
  26. SULFAMETHOXAZOLE AND TRIMETHOPRIM [Concomitant]
     Active Substance: SULFAMETHOXAZOLE\TRIMETHOPRIM
     Indication: Product used for unknown indication
     Route: 065
  27. TRIAMCINOLONE [Concomitant]
     Active Substance: TRIAMCINOLONE
     Indication: Product used for unknown indication
     Route: 065

REACTIONS (5)
  - Erythema [Unknown]
  - Kidney transplant rejection [Unknown]
  - Adverse drug reaction [Unknown]
  - Paraesthesia [Unknown]
  - Tremor [Unknown]
